FAERS Safety Report 4660613-9 (Version None)
Quarter: 2005Q2

REPORT INFORMATION
  Report Type: 
  Country: None (occurrence: None)
  Receive Date: 20050512
  Receipt Date: 20050428
  Transmission Date: 20051028
  Serious: Yes (Hospitalization, Other)
  Sender: FDA-Public Use
  Company Number: 2005AP02538

PATIENT
  Age: 72 Year
  Sex: Male

DRUGS (5)
  1. SEROQUEL [Suspect]
     Indication: PSYCHIATRIC SYMPTOM
     Route: 048
     Dates: start: 20040728, end: 20040808
  2. CRAVIT [Suspect]
     Indication: URINARY TRACT INFECTION
     Route: 048
     Dates: start: 20040727, end: 20040808
  3. MADOPAR [Concomitant]
     Route: 048
     Dates: start: 20040607
  4. DEPAS [Concomitant]
     Route: 048
     Dates: start: 20040622
  5. MAGNESIUM OXIDE [Concomitant]
     Route: 048
     Dates: start: 20040614

REACTIONS (8)
  - INFECTION [None]
  - PLATELET COUNT DECREASED [None]
  - PRURITUS [None]
  - PSYCHIATRIC SYMPTOM [None]
  - PYREXIA [None]
  - RESTLESSNESS [None]
  - URTICARIA [None]
  - WHITE BLOOD CELL COUNT DECREASED [None]
